FAERS Safety Report 17108243 (Version 1)
Quarter: 2019Q4

REPORT INFORMATION
  Report Type: Report from Study
  Country: FR (occurrence: FR)
  Receive Date: 20191203
  Receipt Date: 20191203
  Transmission Date: 20200122
  Serious: Yes (Death)
  Sender: FDA-Public Use
  Company Number: FR-PFIZER INC-2019516475

PATIENT

DRUGS (3)
  1. TEGAFUR/URACIL [Suspect]
     Active Substance: TEGAFUR\URACIL
     Indication: BREAST CANCER METASTATIC
     Dosage: 300 MG/M2, 3X/DAY (DAYS 1 TO 28). AN INTERVAL OF 7 DAYS OFF TREATMENT WAS SCHEDULED BETWEEN DAY 28 A
     Route: 048
  2. PACLITAXEL. [Suspect]
     Active Substance: PACLITAXEL
     Indication: BREAST CANCER METASTATIC
     Dosage: 80 MG/M2, WEEKLY (DAY 1, 8, 15, 22 AND 29) (1-H INTRAVENOUS INFUSION). AN INTERVAL OF 7 DAYS OFF TRE
     Route: 042
  3. CALCIUM FOLINATE [Suspect]
     Active Substance: LEUCOVORIN CALCIUM
     Indication: BREAST CANCER METASTATIC
     Dosage: 90 MG ONE A DAY, CYCLIC. AN INTERVAL OF 7 DAYS OFF TREATMENT WAS SCHEDULED BETWEEN DAY 28 AND DAY 35
     Route: 048

REACTIONS (2)
  - Respiratory failure [Fatal]
  - Septic shock [Fatal]
